FAERS Safety Report 6557593-8 (Version None)
Quarter: 2010Q1

REPORT INFORMATION
  Report Type: 
  Country: None (occurrence: None)
  Receive Date: 20100129
  Receipt Date: 20100109
  Transmission Date: 20100710
  Serious: Yes (Other)
  Sender: FDA-Public Use
  Company Number: PHHY2010BR01190

PATIENT
  Sex: Female

DRUGS (2)
  1. DIOVAN AMLO FIX [Suspect]
     Dosage: 80/5 MG
  2. ANCORON [Concomitant]

REACTIONS (3)
  - FLUID RETENTION [None]
  - JOINT SWELLING [None]
  - SWELLING [None]
